FAERS Safety Report 13239370 (Version 1)
Quarter: 2017Q1

REPORT INFORMATION
  Report Type: Spontaneous
  Country: FR (occurrence: FR)
  Receive Date: 20170216
  Receipt Date: 20170216
  Transmission Date: 20170428
  Serious: Yes (Congenital Anomaly)
  Sender: FDA-Public Use
  Company Number: FR-BAYER-2017-024286

PATIENT
  Sex: Female
  Weight: 3.26 kg

DRUGS (1)
  1. MIRENA [Suspect]
     Active Substance: LEVONORGESTREL
     Dosage: UNK
     Route: 064
     Dates: start: 20150330

REACTIONS (2)
  - Foetal exposure during pregnancy [Unknown]
  - Congenital nose malformation [Not Recovered/Not Resolved]

NARRATIVE: CASE EVENT DATE: 2016
